FAERS Safety Report 11874169 (Version 3)
Quarter: 2016Q1

REPORT INFORMATION
  Report Type: Spontaneous
  Country: JP (occurrence: JP)
  Receive Date: 20151229
  Receipt Date: 20160304
  Transmission Date: 20160526
  Serious: Yes (Hospitalization)
  Sender: FDA-Public Use
  Company Number: JP-009507513-1512JPN013177

PATIENT
  Age: 61 Year
  Sex: Male

DRUGS (6)
  1. GLACTIV [Suspect]
     Active Substance: SITAGLIPTIN
     Indication: TYPE 2 DIABETES MELLITUS
     Dosage: 50 MG, ONCE A DAY
     Route: 048
     Dates: start: 2012
  2. INSULIN LISPRO [Concomitant]
     Active Substance: INSULIN LISPRO
     Dosage: TOTAL DAILY DOSE: 25 IU, (3-14-8)
     Dates: start: 2012
  3. METFORMIN HYDROCHLORIDE. [Concomitant]
     Active Substance: METFORMIN HYDROCHLORIDE
     Dosage: 1500 MG PER DAY
     Dates: start: 2012
  4. INSULIN GLARGINE [Concomitant]
     Active Substance: INSULIN GLARGINE
     Dosage: TOTAL DAILY DOSE: 10 IU, (0-0-10)
     Dates: start: 2012
  5. INSULIN LISPRO [Concomitant]
     Active Substance: INSULIN LISPRO
     Dosage: TOTAL DAILY DOSE: 45 IU, (23-10-12)
     Dates: start: 2015
  6. INSULIN GLARGINE [Concomitant]
     Active Substance: INSULIN GLARGINE
     Dosage: TOTAL DAILY DOSE: 16 IU, (16-0-0)
     Dates: start: 2015

REACTIONS (2)
  - Glaucoma [Unknown]
  - Vogt-Koyanagi-Harada syndrome [Unknown]

NARRATIVE: CASE EVENT DATE: 201211
